FAERS Safety Report 18645673 (Version 1)
Quarter: 2020Q4

REPORT INFORMATION
  Report Type: Spontaneous
  Country: US (occurrence: US)
  Receive Date: 20201221
  Receipt Date: 20201221
  Transmission Date: 20210114
  Serious: Yes (Other)
  Sender: FDA-Public Use
  Company Number: US-PURDUE-USA-2020-0183135

PATIENT
  Sex: Female

DRUGS (1)
  1. HYDROCODONE BITARTRATE AND ACETAMINOPHEN [Suspect]
     Active Substance: ACETAMINOPHEN\HYDROCODONE BITARTRATE
     Indication: PRODUCT USED FOR UNKNOWN INDICATION
     Dosage: UNK
     Route: 048

REACTIONS (11)
  - Mental disorder [Unknown]
  - Dehydration [Unknown]
  - Substance abuse [Unknown]
  - Unevaluable event [Unknown]
  - Amnesia [Unknown]
  - Drug dependence [Unknown]
  - Learning disability [Unknown]
  - Fatigue [Unknown]
  - Thinking abnormal [Unknown]
  - Coordination abnormal [Unknown]
  - Behaviour disorder [Unknown]
